FAERS Safety Report 18897744 (Version 1)
Quarter: 2021Q1

REPORT INFORMATION
  Report Type: Spontaneous
  Country: US (occurrence: US)
  Receive Date: 20210215
  Receipt Date: 20210215
  Transmission Date: 20210420
  Serious: Yes (Other)
  Sender: FDA-Public Use
  Company Number: None

PATIENT
  Age: 77 Year
  Sex: Male

DRUGS (5)
  1. METOPROLOL TART 25MG [Concomitant]
  2. FUROSEMIDE 40MG [Concomitant]
     Active Substance: FUROSEMIDE
  3. ISOSORBIDE MONO ER 30MG [Concomitant]
  4. REPATHA [Suspect]
     Active Substance: EVOLOCUMAB
     Dosage: OTHER FREQUENCY:ONCE PER MONTH;?
     Route: 058
     Dates: start: 20200917, end: 20201117
  5. CLOPIDOGREL [Concomitant]
     Active Substance: CLOPIDOGREL BISULFATE

REACTIONS (4)
  - Fatigue [None]
  - Heart rate increased [None]
  - Cardiac flutter [None]
  - Asthenia [None]

NARRATIVE: CASE EVENT DATE: 20201220
